FAERS Safety Report 6771646-0 (Version None)
Quarter: 2010Q2

REPORT INFORMATION
  Report Type: 
  Country: None (occurrence: None)
  Receive Date: 20100616
  Receipt Date: 20100603
  Transmission Date: 20101027
  Serious: Yes (Other)
  Sender: FDA-Public Use
  Company Number: SE-CELGENEUS-150-CCAZA-09042156

PATIENT

DRUGS (3)
  1. AZACITIDINE [Suspect]
     Route: 058
  2. AZACITIDINE [Suspect]
     Indication: ACUTE MYELOID LEUKAEMIA
     Route: 058
  3. AZACITIDINE [Suspect]

REACTIONS (11)
  - ARTERIAL THROMBOSIS [None]
  - BONE MARROW FAILURE [None]
  - FATIGUE [None]
  - INFECTION [None]
  - MYALGIA [None]
  - NAUSEA [None]
  - NEUTROPENIA [None]
  - PANCYTOPENIA [None]
  - PYREXIA [None]
  - RASH [None]
  - THROMBOCYTOPENIA [None]
